FAERS Safety Report 21947524 (Version 1)
Quarter: 2023Q1

REPORT INFORMATION
  Report Type: Spontaneous
  Country: US (occurrence: US)
  Receive Date: 20230202
  Receipt Date: 20230202
  Transmission Date: 20230418
  Serious: Yes (Other)
  Sender: FDA-Public Use
  Company Number: US-ENDO PHARMACEUTICALS INC-2023-000198

PATIENT
  Sex: Female
  Weight: 60.771 kg

DRUGS (2)
  1. THEO-24 [Suspect]
     Active Substance: THEOPHYLLINE ANHYDROUS
     Indication: Emphysema
     Dosage: UNK UNKNOWN, UNKNOWN
     Route: 065
  2. THEO-24 [Suspect]
     Active Substance: THEOPHYLLINE ANHYDROUS
     Indication: Chronic obstructive pulmonary disease

REACTIONS (2)
  - Spinal fracture [Unknown]
  - Body height decreased [Unknown]
